FAERS Safety Report 8781394 (Version 2)
Quarter: 2012Q4

REPORT INFORMATION
  Report Type: 
  Country: US (occurrence: US)
  Receive Date: 20120913
  Receipt Date: 20120919
  Transmission Date: 20130627
  Serious: Yes (Hospitalization, Other)
  Sender: FDA-Public Use
  Company Number: US-009507513-2011SP056190

PATIENT

DRUGS (2)
  1. NUVARING [Suspect]
     Indication: CONTRACEPTION
     Dosage: UNK
     Dates: start: 2007, end: 20081203
  2. NUVARING [Suspect]
     Indication: DYSMENORRHOEA

REACTIONS (16)
  - Nephrotic syndrome [Unknown]
  - Renal vein thrombosis [Unknown]
  - Pulmonary embolism [Unknown]
  - Systemic lupus erythematosus [Not Recovered/Not Resolved]
  - Lupus nephritis [Unknown]
  - Anaemia [Unknown]
  - Paraesthesia [Unknown]
  - Hypoaesthesia [Unknown]
  - Generalised oedema [Not Recovered/Not Resolved]
  - Herpes simplex [Unknown]
  - Hypoxia [Unknown]
  - Pneumonia [Unknown]
  - Enterococcal infection [Unknown]
  - Muscle spasms [Unknown]
  - Pleural effusion [Unknown]
  - Hypocoagulable state [Unknown]
